FAERS Safety Report 22396577 (Version 2)
Quarter: 2023Q2

REPORT INFORMATION
  Report Type: Spontaneous
  Country: US (occurrence: US)
  Receive Date: 20230601
  Receipt Date: 20230601
  Transmission Date: 20230722
  Serious: No
  Sender: FDA-Public Use
  Company Number: US-APIL-2313100US

PATIENT
  Sex: Female

DRUGS (2)
  1. LATISSE [Suspect]
     Active Substance: BIMATOPROST
     Indication: Product used for unknown indication
     Dosage: 1 DROP PER APPLICATOR AND 1 APPLICATOR PER EYE DAILY.
  2. LATISSE [Suspect]
     Active Substance: BIMATOPROST
     Indication: Product used for unknown indication
     Dosage: 1 DROP PER APPLICATOR AND 1 APPLICATOR PER EYE DAILY.

REACTIONS (2)
  - Skin discolouration [Unknown]
  - Drug ineffective [Unknown]
